FAERS Safety Report 10486676 (Version 2)
Quarter: 2015Q1

REPORT INFORMATION
  Report Type: Report from Study
  Country: ES (occurrence: ES)
  Receive Date: 20141001
  Receipt Date: 20150205
  Transmission Date: 20150720
  Serious: Yes (Other)
  Sender: FDA-Public Use
  Company Number: ES-AMGEN-ESPSP2014074119

PATIENT
  Sex: Female
  Weight: 64 kg

DRUGS (1)
  1. PROLIA [Suspect]
     Active Substance: DENOSUMAB
     Indication: OSTEOPOROSIS POSTMENOPAUSAL
     Dosage: UNK
     Route: 065

REACTIONS (7)
  - Immobile [Unknown]
  - Vitamin D deficiency [Unknown]
  - Back pain [Unknown]
  - Body height decreased [Unknown]
  - Insomnia [Unknown]
  - Activities of daily living impaired [Unknown]
  - Depression [Unknown]
